FAERS Safety Report 18261309 (Version 2)
Quarter: 2020Q3

REPORT INFORMATION
  Report Type: Report from Study
  Country: BR (occurrence: BR)
  Receive Date: 20200914
  Receipt Date: 20200924
  Transmission Date: 20201103
  Serious: Yes (Hospitalization, Other)
  Sender: FDA-Public Use
  Company Number: NVSC2020BR244560

PATIENT
  Age: 65 Year
  Sex: Female

DRUGS (2)
  1. FULVESTRANT. [Suspect]
     Active Substance: FULVESTRANT
     Indication: PRODUCT USED FOR UNKNOWN INDICATION
     Dosage: UNK (EVERY 28 DAYS)
     Route: 065
  2. FEMARA [Suspect]
     Active Substance: LETROZOLE
     Indication: AROMATASE INHIBITION THERAPY
     Dosage: 1 DF, QD
     Route: 065
     Dates: start: 201605

REACTIONS (23)
  - Malaise [Recovered/Resolved]
  - Arthralgia [Not Recovered/Not Resolved]
  - Metastases to lung [Not Recovered/Not Resolved]
  - Neoplasm malignant [Unknown]
  - Nodule [Unknown]
  - Renal cyst [Unknown]
  - Bone disorder [Unknown]
  - Bone fragmentation [Unknown]
  - Gastritis [Unknown]
  - Metastasis [Recovered/Resolved]
  - Umbilical hernia [Unknown]
  - Malignant neoplasm progression [Not Recovered/Not Resolved]
  - Abdominal distension [Recovered/Resolved]
  - Purulence [Recovered/Resolved]
  - Uterine leiomyoma [Unknown]
  - Syncope [Recovered/Resolved]
  - Chronic gastritis [Unknown]
  - Skin exfoliation [Not Recovered/Not Resolved]
  - Dyspnoea [Recovered/Resolved]
  - Pulmonary mass [Unknown]
  - Breast cancer [Not Recovered/Not Resolved]
  - Localised infection [Recovered/Resolved]
  - Disease progression [Unknown]

NARRATIVE: CASE EVENT DATE: 20160512
